FAERS Safety Report 6457551-8 (Version None)
Quarter: 2009Q4

REPORT INFORMATION
  Report Type: 
  Country: None (occurrence: None)
  Receive Date: 20091125
  Receipt Date: 20091116
  Transmission Date: 20100525
  Serious: Yes (Other)
  Sender: FDA-Public Use
  Company Number: PHHY2009CA16650

PATIENT
  Sex: Male

DRUGS (4)
  1. SANDOSTATIN LAR [Suspect]
     Indication: THYROID CANCER
     Dosage: 30 MG EVERY 4 WEEKS
     Route: 030
     Dates: start: 20090427
  2. SANDOSTATIN [Suspect]
     Dosage: UNK
     Route: 058
     Dates: start: 20090414
  3. RADIATION THERAPY [Concomitant]
  4. CHEMOTHERAPEUTICS NOS [Concomitant]
     Dosage: UNK

REACTIONS (11)
  - COUGH [None]
  - DECREASED APPETITE [None]
  - DIARRHOEA [None]
  - FATIGUE [None]
  - INFLUENZA [None]
  - MALAISE [None]
  - METASTASES TO LUNG [None]
  - METASTASES TO LYMPH NODES [None]
  - PAIN IN EXTREMITY [None]
  - PARAESTHESIA [None]
  - WEIGHT DECREASED [None]
